FAERS Safety Report 12452779 (Version 2)
Quarter: 2016Q4

REPORT INFORMATION
  Report Type: Spontaneous
  Country: JP (occurrence: JP)
  Receive Date: 20160609
  Receipt Date: 20161013
  Transmission Date: 20170207
  Serious: Yes (Death)
  Sender: FDA-Public Use
  Company Number: JP-PFIZER INC-2016288754

PATIENT
  Age: 3 Year
  Sex: Female

DRUGS (7)
  1. VINCRISTINE SULFATE. [Concomitant]
     Active Substance: VINCRISTINE SULFATE
     Indication: NEUROBLASTOMA
     Dosage: 1.5 MG/M2, CYCLIC
  2. MELPHALAN [Concomitant]
     Active Substance: MELPHALAN
     Indication: NEUROBLASTOMA
     Dosage: 70 MG/M2, CYCLIC
  3. CISPLATIN. [Concomitant]
     Active Substance: CISPLATIN
     Indication: NEUROBLASTOMA
     Dosage: 20 MG/M2, CYCLIC
  4. CYCLOPHOSPHAMIDE. [Concomitant]
     Active Substance: CYCLOPHOSPHAMIDE
     Indication: NEUROBLASTOMA
     Dosage: 1200 MG/M2, CYCLIC
  5. PIRARUBICIN HYDROCHLORIDE [Concomitant]
     Active Substance: PIRARUBICIN HYDROCHLORIDE
     Indication: NEUROBLASTOMA
     Dosage: 40 MG/M2, CYCLIC
  6. THIOTEPA. [Concomitant]
     Active Substance: THIOTEPA
     Indication: NEUROBLASTOMA
     Dosage: 200 MG/M2, CYCLIC
  7. CAMPTO [Suspect]
     Active Substance: IRINOTECAN
     Indication: NEUROBLASTOMA
     Dosage: 1X/DAY, (CYCLIC)
     Route: 041

REACTIONS (1)
  - Respiratory syncytial virus infection [Fatal]
